FAERS Safety Report 9014697 (Version 1)
Quarter: 2013Q1

REPORT INFORMATION
  Report Type: Report from Study
  Country: US (occurrence: US)
  Receive Date: 20130115
  Receipt Date: 20130115
  Transmission Date: 20140127
  Serious: Yes (Hospitalization)
  Sender: FDA-Public Use
  Company Number: US-BRISTOL-MYERS SQUIBB COMPANY-17264078

PATIENT
  Age: 60 Year
  Sex: Male

DRUGS (5)
  1. SAXAGLIPTIN [Suspect]
     Indication: TYPE 2 DIABETES MELLITUS
     Dates: start: 20110331
  2. METFORMIN HCL [Suspect]
     Indication: TYPE 2 DIABETES MELLITUS
     Dosage: BEFORE RANDOMIZATION-CONTINUING
  3. ACTOS [Suspect]
     Indication: TYPE 2 DIABETES MELLITUS
     Dosage: BEFORE RANDOMIZATION-CONTINUING
  4. BLINDED: PLACEBO [Suspect]
     Indication: TYPE 2 DIABETES MELLITUS
     Dates: start: 20110331
  5. ASPIRIN [Concomitant]
     Dosage: }100MG;16JUN11,05OCT11,19DEC11,04APR2012,03JUL2012,26SEP2012,02JAN2013
     Dates: start: 20110329

REACTIONS (1)
  - Adenocarcinoma of colon [Recovering/Resolving]
